FAERS Safety Report 14330041 (Version 2)
Quarter: 2018Q1

REPORT INFORMATION
  Report Type: Spontaneous
  Country: US (occurrence: US)
  Receive Date: 20171227
  Receipt Date: 20180216
  Transmission Date: 20180509
  Serious: No
  Sender: FDA-Public Use
  Company Number: US-GE HEALTHCARE LIFE SCIENCES-2017CSU004158

PATIENT
  Age: 34 Year
  Sex: Female

DRUGS (1)
  1. OMNIPAQUE [Suspect]
     Active Substance: IOHEXOL
     Indication: PLEURAL EFFUSION
     Dosage: 50 ML, SINGLE
     Route: 042
     Dates: start: 20171214, end: 20171214

REACTIONS (1)
  - Contrast media allergy [Unknown]

NARRATIVE: CASE EVENT DATE: 20171214
